FAERS Safety Report 4743594-9 (Version None)
Quarter: 2005Q3

REPORT INFORMATION
  Report Type: 
  Country: None (occurrence: None)
  Receive Date: 20050810
  Receipt Date: 20050810
  Transmission Date: 20060218
  Serious: Yes (Hospitalization)
  Sender: FDA-Public Use
  Company Number: None

PATIENT
  Age: 59 Year
  Sex: Male
  Weight: 84.1 kg

DRUGS (6)
  1. FELODIPINE [Suspect]
     Indication: HYPERTENSION
     Dosage: 1 DAILY
  2. METOPROLOL SA 50 [Suspect]
     Indication: HYPERTENSION
     Dosage: 1.5 TAB/DAY
  3. IRBESARTAN [Suspect]
     Indication: HYPERTENSION
     Dosage: 1 DAILY
  4. LISINOPRIL [Suspect]
     Indication: HYPERTENSION
     Dosage: 1 Q DAY
  5. LASIX [Suspect]
     Indication: HYPERTENSION
     Dosage: 1 DAILY
  6. KCL TAB [Suspect]
     Indication: HYPERTENSION
     Dosage: 1/D

REACTIONS (12)
  - ABDOMINAL PAIN [None]
  - ANOREXIA [None]
  - ASTHENIA [None]
  - BLOOD PRESSURE SYSTOLIC DECREASED [None]
  - DYSGEUSIA [None]
  - FLUID INTAKE REDUCED [None]
  - HYPERTENSION [None]
  - HYPOTENSION [None]
  - HYPOVOLAEMIA [None]
  - RENAL FAILURE ACUTE [None]
  - RENAL FAILURE CHRONIC [None]
  - TREATMENT NONCOMPLIANCE [None]
